FAERS Safety Report 20615515 (Version 1)
Quarter: 2022Q1

REPORT INFORMATION
  Report Type: Other
  Country: DE (occurrence: None)
  Receive Date: 20220321
  Receipt Date: 20220321
  Transmission Date: 20220423
  Serious: Yes (Death, Other)
  Sender: FDA-Public Use
  Company Number: DE-Saptalis Pharmaceuticals,LLC-000196

PATIENT
  Age: 78 Year
  Sex: Male

DRUGS (4)
  1. TRIAMCINOLONE [Suspect]
     Active Substance: TRIAMCINOLONE
     Indication: Oesophageal stenosis
     Dosage: 80 MG
     Dates: start: 201808
  2. BUDESONIDE [Suspect]
     Active Substance: BUDESONIDE
     Indication: Oesophageal stenosis
     Dosage: 2 DOSES OF 1 MG FOR 6 WEEKS
     Route: 048
  3. TRIAMCINOLONE [Suspect]
     Active Substance: TRIAMCINOLONE
     Indication: Prophylaxis
     Dosage: 80 MG
     Dates: start: 201808
  4. BUDESONIDE [Suspect]
     Active Substance: BUDESONIDE
     Indication: Prophylaxis
     Dosage: 2 DOSES OF 1 MG FOR 6 WEEKS
     Route: 048

REACTIONS (5)
  - Oesophageal carcinoma recurrent [Fatal]
  - Gastrointestinal anastomotic leak [Fatal]
  - Sepsis [Fatal]
  - Multiple organ dysfunction syndrome [Fatal]
  - Ischaemia [Fatal]

NARRATIVE: CASE EVENT DATE: 20190301
